FAERS Safety Report 4387064-9 (Version None)
Quarter: 2004Q2

REPORT INFORMATION
  Report Type: 
  Country: None (occurrence: None)
  Receive Date: 20040630
  Receipt Date: 20040303
  Transmission Date: 20050107
  Serious: No
  Sender: FDA-Public Use
  Company Number: US-GLAXOSMITHKLINE-A0501025A

PATIENT
  Age: 60 Year
  Sex: Male

DRUGS (1)
  1. ADVAIR HFA [Suspect]
     Route: 055

REACTIONS (1)
  - DYSPEPSIA [None]
